FAERS Safety Report 7775984-4 (Version None)
Quarter: 2011Q3

REPORT INFORMATION
  Report Type: 
  Country: None (occurrence: None)
  Receive Date: 20110923
  Receipt Date: 20110914
  Transmission Date: 20111222
  Serious: Yes (Other)
  Sender: FDA-Public Use
  Company Number: US-ASTRAZENECA-2011SE55233

PATIENT
  Age: 66 Year
  Sex: Female
  Weight: 73.9 kg

DRUGS (5)
  1. CROVADELA [Concomitant]
     Indication: BLOOD PRESSURE
     Route: 048
     Dates: start: 20110101
  2. GLOSARTAN K [Concomitant]
     Route: 048
  3. LORANADAM [Concomitant]
     Indication: HYPERSENSITIVITY
     Route: 048
     Dates: start: 20100101
  4. NEXIUM [Suspect]
     Indication: GASTROOESOPHAGEAL REFLUX DISEASE
     Route: 048
     Dates: start: 20070101
  5. SEROQUEL [Concomitant]
     Indication: DEPRESSION
     Route: 048
     Dates: start: 20110720

REACTIONS (1)
  - RENAL CANCER [None]
